FAERS Safety Report 12306275 (Version 3)
Quarter: 2016Q2

REPORT INFORMATION
  Report Type: Spontaneous
  Country: JP (occurrence: JP)
  Receive Date: 20160426
  Receipt Date: 20160617
  Transmission Date: 20160815
  Serious: Yes (Other)
  Sender: FDA-Public Use
  Company Number: PHJP2016JP010586

PATIENT
  Age: 56 Year
  Sex: Male

DRUGS (1)
  1. GLIVEC [Suspect]
     Active Substance: IMATINIB MESYLATE
     Indication: GASTROINTESTINAL STROMAL TUMOUR
     Dosage: 400 MG, QD
     Route: 048

REACTIONS (3)
  - Pain [Unknown]
  - Osteomyelitis [Recovering/Resolving]
  - Otorrhoea [Not Recovered/Not Resolved]

NARRATIVE: CASE EVENT DATE: 20160412
